FAERS Safety Report 7456414-9 (Version None)
Quarter: 2011Q2

REPORT INFORMATION
  Report Type: 
  Country: None (occurrence: None)
  Receive Date: 20110503
  Receipt Date: 20110419
  Transmission Date: 20111010
  Serious: Yes (Other)
  Sender: FDA-Public Use
  Company Number: US-JNJFOC-20101103352

PATIENT
  Age: 40 Year
  Sex: Male

DRUGS (5)
  1. METHYLPREDNISOLONE [Concomitant]
     Route: 051
  2. LAMIVUDINE [Concomitant]
  3. INFLIXIMAB, RECOMBINANT [Suspect]
     Indication: ILL-DEFINED DISORDER
     Dosage: LAST DOSE ONE MONTH BEFORE PML DIAGNOSIS
     Route: 042
  4. STAVUDINE [Concomitant]
  5. TENOFOVIR DISOPROXIL FUMARATE [Concomitant]

REACTIONS (1)
  - PROGRESSIVE MULTIFOCAL LEUKOENCEPHALOPATHY [None]
